FAERS Safety Report 7808130-9 (Version None)
Quarter: 2011Q4

REPORT INFORMATION
  Report Type: 
  Country: None (occurrence: None)
  Receive Date: 20111011
  Receipt Date: 20110929
  Transmission Date: 20120403
  Serious: Yes (Hospitalization, Other)
  Sender: FDA-Public Use
  Company Number: FI-ROCHE-633204

PATIENT
  Sex: Female

DRUGS (2)
  1. MABTHERA [Suspect]
     Dosage: SECOND CYCLE OF RITUXIMAB
  2. MABTHERA [Suspect]
     Indication: BEHCET'S SYNDROME
     Route: 042

REACTIONS (4)
  - PROGRESSIVE MULTIFOCAL LEUKOENCEPHALOPATHY [None]
  - CYTOMEGALOVIRUS INFECTION [None]
  - LYMPHOPENIA [None]
  - HERPES VIRUS INFECTION [None]
